FAERS Safety Report 11783233 (Version 1)
Quarter: 2015Q4

REPORT INFORMATION
  Report Type: Spontaneous
  Country: FR (occurrence: FR)
  Receive Date: 20151127
  Receipt Date: 20151127
  Transmission Date: 20160305
  Serious: Yes (Hospitalization)
  Sender: FDA-Public Use
  Company Number: PHHY2015FR150751

PATIENT
  Age: 42 Year
  Sex: Female

DRUGS (6)
  1. PARACETAMOL [Concomitant]
     Active Substance: ACETAMINOPHEN
     Indication: ANALGESIC THERAPY
     Dosage: 1 G, UNK
     Route: 065
  2. VITAMIN A [Concomitant]
     Active Substance: VITAMIN A
     Indication: TOXIC EPIDERMAL NECROLYSIS
     Route: 065
  3. CICLOSPORIN [Suspect]
     Active Substance: CYCLOSPORINE
     Indication: TOXIC EPIDERMAL NECROLYSIS
     Dosage: 200 MG, UNK
     Route: 065
  4. FUSIDIC ACID [Concomitant]
     Active Substance: FUSIDIC ACID
     Indication: TOXIC EPIDERMAL NECROLYSIS
     Route: 065
  5. NEFOPAM [Concomitant]
     Active Substance: NEFOPAM
     Indication: TOXIC EPIDERMAL NECROLYSIS
  6. OXYCODONE [Concomitant]
     Active Substance: OXYCODONE
     Indication: ANALGESIC THERAPY

REACTIONS (3)
  - Thrombocytopenia [Recovering/Resolving]
  - Disease progression [Recovering/Resolving]
  - Drug effect incomplete [Recovering/Resolving]
